FAERS Safety Report 6593748-4 (Version None)
Quarter: 2010Q1

REPORT INFORMATION
  Report Type: 
  Country: None (occurrence: None)
  Receive Date: 20100218
  Receipt Date: 20100218
  Transmission Date: 20100710
  Serious: Yes (Other)
  Sender: FDA-Public Use
  Company Number: None

PATIENT
  Age: 51 Year
  Sex: Male
  Weight: 104.3273 kg

DRUGS (1)
  1. CLONIDINE [Suspect]
     Indication: AORTIC DISSECTION
     Dosage: .03MG/24
     Dates: start: 20091120, end: 20091204

REACTIONS (4)
  - ANXIETY [None]
  - ECONOMIC PROBLEM [None]
  - PRODUCT QUALITY ISSUE [None]
  - PRODUCT SUBSTITUTION ISSUE [None]
